FAERS Safety Report 9678767 (Version 1)
Quarter: 2013Q4

REPORT INFORMATION
  Report Type: Spontaneous
  Country: FI (occurrence: FI)
  Receive Date: 20131108
  Receipt Date: 20131108
  Transmission Date: 20140711
  Serious: Yes (Hospitalization)
  Sender: FDA-Public Use
  Company Number: FI-BRISTOL-MYERS SQUIBB COMPANY-19708528

PATIENT
  Age: 9 Year
  Sex: Male

DRUGS (2)
  1. ORENCIA FOR INJ [Suspect]
     Indication: JUVENILE IDIOPATHIC ARTHRITIS
     Route: 042
     Dates: start: 20130515, end: 20130715
  2. LEFLUNOMIDE [Concomitant]
     Indication: JUVENILE IDIOPATHIC ARTHRITIS
     Route: 048
     Dates: start: 20100301, end: 20130715

REACTIONS (1)
  - Rash pustular [Not Recovered/Not Resolved]
